FAERS Safety Report 6214565-0 (Version None)
Quarter: 2009Q2

REPORT INFORMATION
  Report Type: 
  Country: None (occurrence: None)
  Receive Date: 20090604
  Receipt Date: 20090528
  Transmission Date: 20091009
  Serious: Yes (Disabling)
  Sender: FDA-Public Use
  Company Number: PHHY2009PT20797

PATIENT
  Sex: Male

DRUGS (5)
  1. RASILEZ [Suspect]
     Indication: HYPERTENSION
     Dosage: 150 MG/DAY
     Route: 048
     Dates: start: 20090401, end: 20090501
  2. ARA II/HCTZ [Concomitant]
     Indication: HYPERTENSION
  3. CALCIUM ANTAGONIST [Concomitant]
     Indication: HYPERTENSION
  4. ASPIRIN [Concomitant]
     Indication: PROPHYLAXIS
  5. STATIN [Concomitant]
     Indication: DYSLIPIDAEMIA

REACTIONS (5)
  - ASTHENIA [None]
  - BLOOD CREATINE INCREASED [None]
  - DIZZINESS [None]
  - PRESYNCOPE [None]
  - RENAL FUNCTION TEST ABNORMAL [None]
